FAERS Safety Report 16854238 (Version 1)
Quarter: 2019Q3

REPORT INFORMATION
  Report Type: Spontaneous
  Country: US (occurrence: US)
  Receive Date: 20190926
  Receipt Date: 20190926
  Transmission Date: 20191005
  Serious: No
  Sender: FDA-Public Use
  Company Number: US-BION-007452

PATIENT
  Age: 65 Year
  Sex: Female
  Weight: 72.57 kg

DRUGS (2)
  1. IMODIUM A-D [Suspect]
     Active Substance: LOPERAMIDE HYDROCHLORIDE
     Indication: DIARRHOEA
     Dosage: DOSE: 2 LIQUID GELS AND THEN 1 THREE TIMES A DAY
     Route: 048
     Dates: start: 20180910
  2. LISINOPRIL. [Concomitant]
     Active Substance: LISINOPRIL
     Indication: HYPERTENSION
     Dosage: STRENGTH: 20 MG

REACTIONS (1)
  - Drug ineffective [Not Recovered/Not Resolved]
